FAERS Safety Report 11256619 (Version 1)
Quarter: 2015Q3

REPORT INFORMATION
  Report Type: Spontaneous
  Country: US (occurrence: US)
  Receive Date: 20150709
  Receipt Date: 20150709
  Transmission Date: 20151125
  Serious: No
  Sender: FDA-Public Use
  Company Number: US-PURDUE-USA-2014-0118634

PATIENT
  Sex: Male

DRUGS (5)
  1. BUTRANS [Suspect]
     Active Substance: BUPRENORPHINE
     Indication: BACK PAIN
     Dosage: 10 MCG/HR, WEEKLY
     Route: 062
     Dates: start: 201410, end: 201410
  2. TRAMADOL. [Concomitant]
     Active Substance: TRAMADOL
     Indication: BREAKTHROUGH PAIN
  3. LORTAB [Concomitant]
     Active Substance: ACETAMINOPHEN\HYDROCODONE BITARTRATE
     Indication: PAIN
     Dosage: 20 MG, TID
     Route: 048
     Dates: start: 2011
  4. TYLENOL WITH CODEINE [Concomitant]
     Active Substance: ACETAMINOPHEN\CODEINE PHOSPHATE
     Indication: PRODUCT USED FOR UNKNOWN INDICATION
  5. BUTRANS [Suspect]
     Active Substance: BUPRENORPHINE
     Indication: SPINAL COLUMN STENOSIS
     Dosage: 20 MCG/HR, WEEKLY
     Route: 062
     Dates: start: 20141030

REACTIONS (7)
  - Pain [Unknown]
  - Blood pressure increased [Unknown]
  - Gait disturbance [Unknown]
  - Drug ineffective [Recovering/Resolving]
  - Anxiety [Unknown]
  - General physical health deterioration [Unknown]
  - Cough [Unknown]
